FAERS Safety Report 10100940 (Version 7)
Quarter: 2024Q3

REPORT INFORMATION
  Report Type: Report from Study
  Country: JP (occurrence: JP)
  Receive Date: 20140424
  Receipt Date: 20240919
  Transmission Date: 20241017
  Serious: Yes (Hospitalization, Disabling)
  Sender: AMGEN
  Company Number: JP-DSJP-DSJ-2014-105374

PATIENT
  Age: 77 Year
  Sex: Male
  Weight: 50 kg

DRUGS (26)
  1. DENOSUMAB [Suspect]
     Active Substance: DENOSUMAB
     Indication: Metastases to bone
     Dosage: 120 MG, 2013/10/11, 11/27
     Route: 058
     Dates: start: 20131011, end: 20131127
  2. NIACINAMIDE\PAPAVERINE HYDROCHLORIDE [Concomitant]
     Active Substance: NIACINAMIDE\PAPAVERINE HYDROCHLORIDE
     Dosage: 6 DOSAGE FORM, QD
     Route: 048
     Dates: start: 20120924
  3. SUTENT [Concomitant]
     Active Substance: SUNITINIB MALATE
     Dosage: UNK
     Route: 065
     Dates: start: 20130902, end: 20131024
  4. ALFAROL [Concomitant]
     Active Substance: ALFACALCIDOL
     Dosage: 0.5 MICROGRAM, QD
     Route: 048
     Dates: start: 20131011, end: 20140124
  5. CALCIUM LACTATE [Concomitant]
     Active Substance: CALCIUM LACTATE
     Dosage: 3 GRAM, QD
     Route: 048
     Dates: start: 20131011, end: 20140124
  6. LEVOTHYROXINE SODIUM [Concomitant]
     Active Substance: LEVOTHYROXINE SODIUM
     Dosage: 50 MICROGRAM, QD
     Route: 048
     Dates: start: 20130910
  7. LOXOPROFEN SODIUM [Concomitant]
     Active Substance: LOXOPROFEN SODIUM
     Dosage: 60 MILLIGRAM, AS NEEDED
     Route: 048
     Dates: start: 20121017, end: 20130913
  8. LOXOPROFEN SODIUM [Concomitant]
     Active Substance: LOXOPROFEN SODIUM
     Dosage: 180MG/DAY
     Dates: start: 20130914
  9. LANSOPRAZOLE [Concomitant]
     Active Substance: LANSOPRAZOLE
     Dosage: 15 MILLIGRAM, QD
     Route: 048
     Dates: start: 20130910
  10. PLAVIX [Concomitant]
     Active Substance: CLOPIDOGREL BISULFATE
     Dosage: 75 MILLIGRAM, QD
     Route: 048
     Dates: start: 20130910
  11. AMLODIPINE BESYLATE [Concomitant]
     Active Substance: AMLODIPINE BESYLATE
     Dosage: 5MG/DAY
     Route: 048
     Dates: start: 20130910
  12. ICOSAPENT [Concomitant]
     Active Substance: ICOSAPENT
     Dosage: 1800 MILLIGRAM, QD
     Route: 048
     Dates: start: 20130907
  13. AFINITOR [Concomitant]
     Active Substance: EVEROLIMUS
     Indication: Renal cancer
     Dosage: 180 MILLIGRAM
     Route: 065
     Dates: start: 20131126, end: 20140123
  14. SUMIFERON [Concomitant]
     Active Substance: INTERFERON ALFA-N1
     Dosage: UNK
     Route: 065
     Dates: start: 20121015, end: 20121128
  15. SENNOSIDES [Concomitant]
     Active Substance: SENNOSIDES
     Dosage: 24 MILLIGRAM, QD
     Route: 048
     Dates: start: 20130903, end: 20130907
  16. METHYLCOBALAMIN [Concomitant]
     Active Substance: METHYLCOBALAMIN
     Dosage: 1500 MICROGRAM, QD
     Route: 048
     Dates: start: 20130910
  17. SODIUM FERROUS CITRATE [Concomitant]
     Active Substance: SODIUM FERROUS CITRATE
     Dosage: 100 MILLIGRAM, QD
     Route: 048
     Dates: start: 20130910
  18. MAGNESIUM OXIDE [Concomitant]
     Active Substance: MAGNESIUM OXIDE
     Dosage: 3 GRAM, QD
     Route: 048
     Dates: start: 20130910
  19. CEFOTIAM HYDROCHLORIDE [Concomitant]
     Active Substance: CEFOTIAM HYDROCHLORIDE
     Dosage: 1 GRAM, QD
     Route: 042
     Dates: start: 20130919, end: 20130921
  20. GLYCOSAMINOGLYCANS [Concomitant]
     Active Substance: GLYCOSAMINOGLYCANS
     Dosage: PROPER DOSE, UNK
     Route: 050
     Dates: start: 20130915, end: 20131120
  21. UREA [Concomitant]
     Active Substance: UREA
     Dosage: PROPER DOSE, UNK
     Route: 050
     Dates: start: 20130828, end: 20131120
  22. LOCOID [Concomitant]
     Active Substance: HYDROCORTISONE BUTYRATE
     Dosage: PROPER DOSE, UNK
     Route: 050
     Dates: start: 20130917, end: 20131120
  23. LYRICA [Concomitant]
     Active Substance: PREGABALIN
     Dosage: 150MG/DAY
     Route: 048
     Dates: start: 20131216, end: 20140122
  24. LYRICA [Concomitant]
     Active Substance: PREGABALIN
     Dosage: 175MG/DAY
     Route: 048
     Dates: start: 20140123
  25. DICLOFENAC SODIUM [Concomitant]
     Active Substance: DICLOFENAC\DICLOFENAC SODIUM
     Dosage: 25 MILLIGRAM, AS NECESSARY
     Route: 050
     Dates: start: 20131227, end: 20140207
  26. Adona [Concomitant]
     Dosage: 90 MILLIGRAM, QD
     Route: 048
     Dates: start: 20140225, end: 20140307

REACTIONS (5)
  - Osteitis [Recovered/Resolved]
  - Osteonecrosis of jaw [Recovered/Resolved]
  - Toothache [Recovered/Resolved]
  - Insomnia [Recovering/Resolving]
  - Platelet count decreased [Recovered/Resolved]

NARRATIVE: CASE EVENT DATE: 20131025
